FAERS Safety Report 5404306-9 (Version None)
Quarter: 2007Q3

REPORT INFORMATION
  Report Type: 
  Country: None (occurrence: None)
  Receive Date: 20070730
  Receipt Date: 20070725
  Transmission Date: 20080115
  Serious: Yes (Other)
  Sender: FDA-Public Use
  Company Number: 6035582

PATIENT
  Age: 34 Year
  Sex: Female

DRUGS (1)
  1. AMLODIPINE [Suspect]
     Indication: DRUG USE FOR UNKNOWN INDICATION
     Dosage: (30 MG)

REACTIONS (2)
  - CIRCULATORY COLLAPSE [None]
  - OVERDOSE [None]
